FAERS Safety Report 8807319 (Version 1)
Quarter: 2012Q4

REPORT INFORMATION
  Report Type: 
  Country: US (occurrence: US)
  Receive Date: 20120925
  Receipt Date: 20120925
  Transmission Date: 20130627
  Serious: Yes (Other)
  Sender: FDA-Public Use
  Company Number: US-JUTA-2012-16537

PATIENT
  Age: 55 Year
  Sex: Male

DRUGS (2)
  1. SERTRALINE HYDROCHLORIDE (UNKNOWN) [Suspect]
     Indication: POST-TRAUMATIC STRESS DISORDER
     Dosage: 100 mg, daily
     Route: 065
  2. BUPROPION HYDROCHLORIDE (WATSON LABORATORIES) [Suspect]
     Indication: POST-TRAUMATIC STRESS DISORDER
     Dosage: 100 mg, daily
     Route: 065

REACTIONS (3)
  - Hypersexuality [Recovered/Resolved]
  - Erection increased [Recovered/Resolved]
  - Drug interaction [Recovered/Resolved]
